FAERS Safety Report 7981553-3 (Version None)
Quarter: 2011Q4

REPORT INFORMATION
  Report Type: 
  Country: None (occurrence: None)
  Receive Date: 20111215
  Receipt Date: 20111213
  Transmission Date: 20120403
  Serious: Yes (Other)
  Sender: FDA-Public Use
  Company Number: IT-PFIZER INC-2011303037

PATIENT
  Age: 63 Year
  Sex: Male

DRUGS (1)
  1. EFFEXOR [Suspect]
     Indication: DEPRESSION
     Dosage: 75 MG, 1X/DAY
     Dates: start: 20090101

REACTIONS (4)
  - PANIC REACTION [None]
  - DRUG DEPENDENCE [None]
  - ASTHENIA [None]
  - IMPULSE-CONTROL DISORDER [None]
